FAERS Safety Report 4825822-4 (Version None)
Quarter: 2005Q4

REPORT INFORMATION
  Report Type: 
  Country: None (occurrence: None)
  Receive Date: 20051111
  Receipt Date: 20051102
  Transmission Date: 20060501
  Serious: Yes (Other)
  Sender: FDA-Public Use
  Company Number: US-JNJFOC-20051100792

PATIENT
  Sex: Female
  Weight: 47.63 kg

DRUGS (9)
  1. REMICADE [Suspect]
     Route: 042
  2. REMICADE [Suspect]
     Indication: RHEUMATOID ARTHRITIS
     Route: 042
  3. METHOTREXATE [Concomitant]
     Indication: RHEUMATOID ARTHRITIS
  4. BLOOD PRESSURE PILLS [Concomitant]
  5. INSULIN [Concomitant]
  6. OXYCODONE [Concomitant]
     Indication: PAIN
  7. LISINOPRIL [Concomitant]
  8. LABETALOL [Concomitant]
     Indication: HYPERTENSION
  9. NOVOLOG [Concomitant]

REACTIONS (8)
  - ARTHRALGIA [None]
  - FATIGUE [None]
  - OPTIC NERVE DISORDER [None]
  - PAIN [None]
  - PAIN IN EXTREMITY [None]
  - SOMNOLENCE [None]
  - VISUAL ACUITY REDUCED [None]
  - VISUAL DISTURBANCE [None]
